FAERS Safety Report 10961249 (Version 1)
Quarter: 2015Q1

REPORT INFORMATION
  Report Type: Spontaneous
  Country: FR (occurrence: FR)
  Receive Date: 20150327
  Receipt Date: 20150327
  Transmission Date: 20150721
  Serious: Yes (Hospitalization, Other)
  Sender: FDA-Public Use
  Company Number: FR-TEVA-549826ISR

PATIENT
  Age: 61 Year
  Sex: Male

DRUGS (1)
  1. COPAXONE [Suspect]
     Active Substance: GLATIRAMER ACETATE
     Dosage: STARTED ABOUT SEVEN YEARS, WITH THE AUTOJECT
     Route: 058

REACTIONS (9)
  - Diabetes mellitus [Recovered/Resolved]
  - Gingival recession [Recovering/Resolving]
  - Fatigue [Recovered/Resolved]
  - Urinary incontinence [Unknown]
  - Gait disturbance [Unknown]
  - Tremor [Unknown]
  - Multiple sclerosis relapse [Recovered/Resolved]
  - Muscle disorder [Unknown]
  - Injection site mass [Recovered/Resolved]

NARRATIVE: CASE EVENT DATE: 201209
